FAERS Safety Report 4316815-4 (Version None)
Quarter: 2004Q1

REPORT INFORMATION
  Report Type: 
  Country: None (occurrence: None)
  Receive Date: 20040308
  Receipt Date: 20040122
  Transmission Date: 20041129
  Serious: No
  Sender: FDA-Public Use
  Company Number: PHEH2004US01093

PATIENT
  Age: 66 Year
  Sex: Female

DRUGS (5)
  1. GLEEVEC [Suspect]
     Indication: CHRONIC MYELOID LEUKAEMIA
     Dosage: 500 MG, QD, ORAL
     Route: 048
     Dates: start: 20030601, end: 20031201
  2. GLEEVEC [Suspect]
     Indication: CHRONIC MYELOID LEUKAEMIA
     Dosage: 500 MG, QD, ORAL
     Route: 048
     Dates: start: 20030601, end: 20031201
  3. INDERAL ^IMPERIAL CHEMICAL INDUSTRIES [Concomitant]
  4. CALCIUM [Concomitant]
  5. PREMARIN/NEZ/(ESTROGENS CONJUGATED) [Concomitant]

REACTIONS (2)
  - INFLAMMATION [None]
  - NAUSEA [None]
